FAERS Safety Report 11471420 (Version 2)
Quarter: 2015Q3

REPORT INFORMATION
  Report Type: Spontaneous
  Country: US (occurrence: US)
  Receive Date: 20150903
  Receipt Date: 20150903
  Transmission Date: 20151125
  Serious: No
  Sender: FDA-Public Use
  Company Number: US-ELI_LILLY_AND_COMPANY-US201111003165

PATIENT
  Age: 46 Year
  Sex: Male

DRUGS (5)
  1. CYMBALTA [Suspect]
     Active Substance: DULOXETINE HYDROCHLORIDE
     Dosage: 30 MG, QD
     Route: 048
     Dates: start: 20100115
  2. CYMBALTA [Suspect]
     Active Substance: DULOXETINE HYDROCHLORIDE
     Dosage: 60 MG, QD
     Route: 048
     Dates: start: 20100322
  3. CYMBALTA [Suspect]
     Active Substance: DULOXETINE HYDROCHLORIDE
     Dosage: 30 MG, QD
     Dates: start: 20111018, end: 20111025
  4. CYMBALTA [Suspect]
     Active Substance: DULOXETINE HYDROCHLORIDE
     Dosage: UNK
  5. CYMBALTA [Suspect]
     Active Substance: DULOXETINE HYDROCHLORIDE
     Indication: BACK PAIN
     Dosage: 60 MG, QD
     Dates: start: 2008

REACTIONS (22)
  - Libido decreased [Recovering/Resolving]
  - Feeling of despair [Recovering/Resolving]
  - Aphasia [Recovering/Resolving]
  - Dysstasia [Recovering/Resolving]
  - Confusional state [Not Recovered/Not Resolved]
  - Anger [Recovering/Resolving]
  - Sexual dysfunction [Recovering/Resolving]
  - Influenza like illness [Not Recovered/Not Resolved]
  - Crying [Not Recovered/Not Resolved]
  - Memory impairment [Recovering/Resolving]
  - Feeling abnormal [Recovering/Resolving]
  - Hyperhidrosis [Recovering/Resolving]
  - Balance disorder [Recovering/Resolving]
  - Paraesthesia [Not Recovered/Not Resolved]
  - Sexual dysfunction [Not Recovered/Not Resolved]
  - Anxiety [Recovering/Resolving]
  - Drug effect decreased [Recovered/Resolved]
  - Personality change [Recovering/Resolving]
  - Irritability [Not Recovered/Not Resolved]
  - Fatigue [Recovering/Resolving]
  - Drug withdrawal syndrome [Not Recovered/Not Resolved]
  - Insomnia [Recovering/Resolving]
